FAERS Safety Report 12319929 (Version 1)
Quarter: 2016Q2

REPORT INFORMATION
  Report Type: Spontaneous
  Country: US (occurrence: US)
  Receive Date: 20160429
  Receipt Date: 20160429
  Transmission Date: 20160815
  Serious: No
  Sender: FDA-Public Use
  Company Number: US-ROCHE-1629201

PATIENT
  Sex: Female
  Weight: 61.29 kg

DRUGS (4)
  1. LISINOPRIL. [Concomitant]
     Active Substance: LISINOPRIL
     Route: 065
  2. AVASTIN [Suspect]
     Active Substance: BEVACIZUMAB
     Indication: MACULAR DEGENERATION
     Dosage: IN RIGHT EYE
     Route: 042
  3. EYLEA [Concomitant]
     Active Substance: AFLIBERCEPT
     Indication: MACULAR DEGENERATION
     Dosage: IN RIGHT EYE
     Route: 042
     Dates: end: 20150616
  4. BYSTOLIC [Concomitant]
     Active Substance: NEBIVOLOL HYDROCHLORIDE
     Route: 065

REACTIONS (2)
  - Drug ineffective [Unknown]
  - Off label use [Unknown]
